FAERS Safety Report 9089719 (Version 1)
Quarter: 2013Q1

REPORT INFORMATION
  Report Type: Spontaneous
  Country: US (occurrence: US)
  Receive Date: 20130131
  Receipt Date: 20130131
  Transmission Date: 20140127
  Serious: No
  Sender: FDA-Public Use
  Company Number: US-ABBOTT-12P-163-1015161-00

PATIENT
  Age: 59 Year
  Sex: Male

DRUGS (21)
  1. HUMIRA [Suspect]
     Indication: CROHN^S DISEASE
  2. METINEX [Concomitant]
     Indication: NEUROPATHY PERIPHERAL
  3. FLONASE [Concomitant]
     Indication: HYPERSENSITIVITY
  4. GLYBURIDE [Concomitant]
     Indication: DIABETES MELLITUS
  5. LOSARTAN [Concomitant]
     Indication: HYPERTENSION
  6. METFORMIN [Concomitant]
     Indication: DIABETES MELLITUS
  7. ASPIRIN [Concomitant]
     Indication: PRODUCT USED FOR UNKNOWN INDICATION
     Dosage: DAILY
  8. OMEPRAZOLE [Concomitant]
     Indication: GASTROOESOPHAGEAL REFLUX DISEASE
  9. AMITRIPTYLINE [Concomitant]
     Indication: NEURALGIA
  10. FISH OIL [Concomitant]
     Indication: MEDICAL DIET
  11. MIRALAX [Concomitant]
     Indication: CONSTIPATION
  12. CALCIUM [Concomitant]
     Indication: MINERAL SUPPLEMENTATION
  13. VITAMIN D [Concomitant]
     Indication: VITAMIN SUPPLEMENTATION
  14. VALTREX [Concomitant]
     Indication: STOMATITIS
  15. VALIUM [Concomitant]
     Indication: PAIN
  16. LASIX [Concomitant]
     Indication: JOINT SWELLING
  17. IBUPROFEN [Concomitant]
     Indication: ARTHRITIS
  18. SKELAXIN [Concomitant]
     Indication: ARTHRALGIA
  19. AMBIEN [Concomitant]
     Indication: INSOMNIA
  20. PERCOCET [Concomitant]
     Indication: PAIN
  21. ZOFRAN [Concomitant]
     Indication: NAUSEA

REACTIONS (3)
  - Respiratory tract congestion [Unknown]
  - Influenza like illness [Unknown]
  - Nasopharyngitis [Unknown]
